FAERS Safety Report 9773312 (Version 1)
Quarter: 2013Q4

REPORT INFORMATION
  Report Type: Report from Study
  Country: US (occurrence: US)
  Receive Date: 20131219
  Receipt Date: 20131219
  Transmission Date: 20140711
  Serious: Yes (Hospitalization)
  Sender: FDA-Public Use
  Company Number: US-PURDUE-USA-2013-0109641

PATIENT
  Sex: Female

DRUGS (2)
  1. OXY CR TAB [Suspect]
     Indication: SPINAL COLUMN INJURY
     Dosage: UNK
     Route: 048
     Dates: start: 201106
  2. OXY CR TAB [Suspect]
     Dosage: 40 MG, BID
     Route: 048
     Dates: start: 20131119

REACTIONS (1)
  - Pneumonia [Unknown]
